FAERS Safety Report 7722436-3 (Version None)
Quarter: 2011Q3

REPORT INFORMATION
  Report Type: 
  Country: None (occurrence: None)
  Receive Date: 20110831
  Receipt Date: 20110831
  Transmission Date: 20111222
  Serious: Yes (Life-Threatening)
  Sender: FDA-Public Use
  Company Number: JP-PFIZER INC-2010162079

PATIENT
  Age: 52 Year
  Sex: Male
  Weight: 64 kg

DRUGS (3)
  1. SILDENAFIL CITRATE [Suspect]
     Dosage: UNK
     Route: 048
     Dates: start: 20081119, end: 20090520
  2. SILDENAFIL CITRATE [Suspect]
     Dosage: 60 MG, 3X/DAY
     Route: 048
     Dates: start: 20090521, end: 20100325
  3. SILDENAFIL CITRATE [Suspect]
     Dosage: 60 MG, 3X/DAY
     Route: 048
     Dates: start: 20100408

REACTIONS (1)
  - COLON CANCER [None]
